FAERS Safety Report 14669401 (Version 2)
Quarter: 2018Q1

REPORT INFORMATION
  Report Type: Report from Study
  Country: ES (occurrence: ES)
  Receive Date: 20180322
  Receipt Date: 20180329
  Transmission Date: 20180509
  Serious: Yes (Hospitalization)
  Sender: FDA-Public Use
  Company Number: ES-PFIZER INC-2018115674

PATIENT
  Age: 67 Year
  Sex: Male
  Weight: 87 kg

DRUGS (11)
  1. AFLIBERCEPT [Suspect]
     Active Substance: AFLIBERCEPT
     Dosage: 364 MG, CYCLIC
     Route: 041
     Dates: start: 20151109, end: 20151109
  2. OMEPRAZOLE. [Concomitant]
     Active Substance: OMEPRAZOLE
     Dosage: UNK
     Dates: start: 20151120
  3. CALCIUM FOLINATE [Suspect]
     Active Substance: LEUCOVORIN CALCIUM
     Indication: COLORECTAL CANCER METASTATIC
     Dosage: 812 MG, CYCLIC
     Route: 041
     Dates: start: 20150831, end: 20150831
  4. 5-FU /00098801/ [Suspect]
     Active Substance: FLUOROURACIL
     Dosage: 812 MG, CYCLIC
     Route: 041
     Dates: start: 20151109, end: 20151109
  5. IRINOTECAN HCL [Suspect]
     Active Substance: IRINOTECAN HYDROCHLORIDE
     Dosage: 304 MG, CYCLIC
     Route: 041
     Dates: start: 20151109, end: 20151109
  6. 5-FU /00098801/ [Suspect]
     Active Substance: FLUOROURACIL
     Dosage: 812 MG, CYCLIC
     Route: 040
     Dates: start: 20150831, end: 20150831
  7. IRINOTECAN HCL [Suspect]
     Active Substance: IRINOTECAN HYDROCHLORIDE
     Indication: COLORECTAL CANCER METASTATIC
     Dosage: 365.4 MG, CYCLIC
     Route: 041
     Dates: start: 20150831, end: 20150831
  8. AFLIBERCEPT [Suspect]
     Active Substance: AFLIBERCEPT
     Indication: COLORECTAL CANCER METASTATIC
     Dosage: 364 MG, CYCLIC
     Route: 041
     Dates: start: 20150831, end: 20150831
  9. 5-FU /00098801/ [Suspect]
     Active Substance: FLUOROURACIL
     Indication: COLORECTAL CANCER METASTATIC
     Dosage: 4872 MG, CYCLIC
     Route: 041
     Dates: start: 20150831
  10. CALCIUM FOLINATE [Suspect]
     Active Substance: LEUCOVORIN CALCIUM
     Dosage: 812 MG, CYCLIC
     Route: 041
     Dates: start: 20151109, end: 20151109
  11. 5-FU /00098801/ [Suspect]
     Active Substance: FLUOROURACIL
     Dosage: 4872 MG, CYCLIC
     Route: 040
     Dates: start: 20151109

REACTIONS (3)
  - Laryngeal pain [Recovered/Resolved]
  - Fatigue [Recovered/Resolved]
  - Diarrhoea [Recovered/Resolved]

NARRATIVE: CASE EVENT DATE: 20151116
